FAERS Safety Report 9451440 (Version 1)
Quarter: 2013Q3

REPORT INFORMATION
  Report Type: Report from Study
  Country: US (occurrence: US)
  Receive Date: 20130809
  Receipt Date: 20130809
  Transmission Date: 20140515
  Serious: Yes (Hospitalization)
  Sender: FDA-Public Use
  Company Number: US-ROCHE-1259582

PATIENT
  Age: 40 Year
  Sex: 0

DRUGS (4)
  1. RITUXIMAB [Suspect]
     Indication: RHEUMATOID ARTHRITIS
     Route: 065
  2. RITUXIMAB [Suspect]
     Indication: SJOGREN^S SYNDROME
  3. RITUXIMAB [Suspect]
     Indication: OBLITERATIVE BRONCHIOLITIS
  4. AZATHIOPRINE [Concomitant]

REACTIONS (1)
  - Pneumocystis jirovecii pneumonia [Unknown]
